FAERS Safety Report 24466663 (Version 1)
Quarter: 2024Q4

REPORT INFORMATION
  Report Type: Report from Study
  Country: US (occurrence: US)
  Receive Date: 20241018
  Receipt Date: 20241018
  Transmission Date: 20250115
  Serious: No
  Sender: ROCHE
  Company Number: US-ROCHE-3546870

PATIENT
  Age: 64 Year
  Sex: Female
  Weight: 77.0 kg

DRUGS (2)
  1. XOLAIR [Suspect]
     Active Substance: OMALIZUMAB
     Indication: Asthma
     Route: 058
  2. XOLAIR [Suspect]
     Active Substance: OMALIZUMAB
     Indication: Urticaria
     Route: 058

REACTIONS (6)
  - Rash [Unknown]
  - Pruritus [Unknown]
  - Pain [Unknown]
  - Acne [Unknown]
  - Fatigue [Unknown]
  - Arthralgia [Unknown]
